FAERS Safety Report 24299877 (Version 1)
Quarter: 2024Q3

REPORT INFORMATION
  Report Type: Spontaneous
  Country: IL (occurrence: IL)
  Receive Date: 20240909
  Receipt Date: 20240909
  Transmission Date: 20241017
  Serious: Yes (Hospitalization, Other)
  Sender: NOVARTIS
  Company Number: IL-002147023-NVSC2024IL177172

PATIENT
  Age: 80 Year
  Sex: Female

DRUGS (2)
  1. TASIGNA [Suspect]
     Active Substance: NILOTINIB
     Indication: Chronic myeloid leukaemia
     Dosage: 300 MG (300MG X 2/D)
     Route: 065
     Dates: start: 202209
  2. BOSUTINIB [Suspect]
     Active Substance: BOSUTINIB
     Indication: Product used for unknown indication
     Dosage: 500 MG, QD
     Route: 065
     Dates: start: 202210

REACTIONS (22)
  - Necrosis [Recovering/Resolving]
  - Diarrhoea [Recovered/Resolved]
  - Renal impairment [Recovering/Resolving]
  - Dyspnoea [Recovering/Resolving]
  - Cough [Recovering/Resolving]
  - Productive cough [Recovering/Resolving]
  - Oedema [Recovering/Resolving]
  - Venous hypertension [Unknown]
  - Cardiac failure [Recovering/Resolving]
  - Oxygen saturation decreased [Unknown]
  - Pleural effusion [Recovering/Resolving]
  - Inflammation [Unknown]
  - Hypervolaemia [Recovering/Resolving]
  - Abdominal discomfort [Recovered/Resolved]
  - Nausea [Recovering/Resolving]
  - Alanine aminotransferase increased [Recovering/Resolving]
  - Rash [Recovering/Resolving]
  - Cardiovascular disorder [Recovering/Resolving]
  - Cerebrovascular disorder [Recovering/Resolving]
  - Peripheral vascular disorder [Recovering/Resolving]
  - Mood altered [Recovering/Resolving]
  - Feeling abnormal [Recovering/Resolving]
